FAERS Safety Report 12237773 (Version 1)
Quarter: 2016Q2

REPORT INFORMATION
  Report Type: Report from Study
  Country: GR (occurrence: GR)
  Receive Date: 20160405
  Receipt Date: 20160405
  Transmission Date: 20160815
  Serious: Yes (Hospitalization)
  Sender: FDA-Public Use
  Company Number: PHHO2016GR004154

PATIENT
  Age: 38 Year
  Sex: Female
  Weight: 66.5 kg

DRUGS (12)
  1. TACROLIMUS. [Suspect]
     Active Substance: TACROLIMUS
     Indication: RENAL TRANSPLANT
     Dosage: 7.5 MG (2 TO 7.5 MG), UNK
     Route: 048
     Dates: start: 20150603
  2. FERINJECT [Suspect]
     Active Substance: FERRIC CARBOXYMALTOSE
     Indication: PRODUCT USED FOR UNKNOWN INDICATION
     Route: 065
  3. PREZOLON [Suspect]
     Active Substance: PREDNISOLONE
     Indication: RENAL TRANSPLANT
     Dosage: 20 MG (5 TO 20 MG)
     Route: 048
     Dates: start: 20150608
  4. LUMAREN [Concomitant]
     Indication: PROPHYLAXIS
     Dosage: 150 MG, UNK
     Route: 048
     Dates: start: 20150610
  5. D3 FIX [Concomitant]
     Indication: VITAMIN D DEFICIENCY
     Dosage: 4000 IU, UNK
     Route: 048
     Dates: start: 20150115
  6. NIMPARA [Concomitant]
     Indication: HYPERPARATHYROIDISM SECONDARY
     Dosage: 90 MG, UNK
     Route: 048
     Dates: start: 20150702
  7. MYFORTIC [Suspect]
     Active Substance: MYCOPHENOLATE SODIUM
     Indication: RENAL TRANSPLANT
     Dosage: 2000 MG (1000 TO 2000 MG), UNK
     Route: 048
     Dates: start: 20150603
  8. LASIX [Concomitant]
     Active Substance: FUROSEMIDE
     Indication: FLUID OVERLOAD
     Dosage: 500 MG (120 TO 500 MG)
     Route: 048
     Dates: start: 20150622
  9. NO TREATMENT RECEIVED [Suspect]
     Active Substance: UNSPECIFIED INGREDIENT
     Indication: RENAL TRANSPLANT
     Dosage: NO TREATMENT
     Route: 065
  10. LASIX [Concomitant]
     Active Substance: FUROSEMIDE
     Indication: DIURETIC THERAPY
  11. TROFOCARD [Concomitant]
     Indication: HYPOMAGNESAEMIA
     Dosage: 2459.2 MG (1279.6 TO 2459.3)
     Route: 048
     Dates: start: 20150625
  12. ZYLAPOUR [Concomitant]
     Indication: HYPERURICAEMIA
     Dosage: 100 MG, UNK
     Route: 048
     Dates: start: 20150702

REACTIONS (1)
  - Polycythaemia [Not Recovered/Not Resolved]

NARRATIVE: CASE EVENT DATE: 20160302
